FAERS Safety Report 13007557 (Version 1)
Quarter: 2016Q4

REPORT INFORMATION
  Report Type: Report from Study
  Country: GB (occurrence: GB)
  Receive Date: 20161207
  Receipt Date: 20161207
  Transmission Date: 20170207
  Serious: Yes (Other)
  Sender: FDA-Public Use
  Company Number: ALCN2016GB008000

PATIENT
  Age: 99 Year
  Sex: Female

DRUGS (2)
  1. BRINZOLAMIDE [Suspect]
     Active Substance: BRINZOLAMIDE
     Indication: EXFOLIATION GLAUCOMA
     Dosage: UNK
     Route: 047
  2. LUMIGAN [Suspect]
     Active Substance: BIMATOPROST
     Indication: EXFOLIATION GLAUCOMA
     Dosage: UNK
     Route: 065

REACTIONS (8)
  - Visual acuity reduced [Not Recovered/Not Resolved]
  - Eye pain [Recovering/Resolving]
  - Lens dislocation [Unknown]
  - Corneal oedema [Not Recovered/Not Resolved]
  - Glaucoma [Recovering/Resolving]
  - Conjunctival hyperaemia [Recovering/Resolving]
  - Intraocular pressure increased [Recovered/Resolved]
  - Pupil fixed [Recovering/Resolving]
